FAERS Safety Report 14772642 (Version 2)
Quarter: 2019Q2

REPORT INFORMATION
  Report Type: Report from Study
  Country: None (occurrence: CA)
  Receive Date: 20180418
  Receipt Date: 20190622
  Transmission Date: 20190711
  Serious: Yes (Hospitalization)
  Sender: FDA-Public Use
  Company Number: CA-ABBVIE-18K-028-2251216-00

PATIENT
  Sex: Female

DRUGS (3)
  1. HUMIRA [Suspect]
     Active Substance: ADALIMUMAB
     Indication: COLITIS ULCERATIVE
     Route: 058
  2. HUMIRA [Suspect]
     Active Substance: ADALIMUMAB
     Indication: COLITIS ULCERATIVE
     Route: 058
     Dates: start: 20130523, end: 20180203
  3. CELECOXIB. [Suspect]
     Active Substance: CELECOXIB
     Indication: CHRONIC RECURRENT MULTIFOCAL OSTEOMYELITIS
     Route: 065
     Dates: start: 201903, end: 2019

REACTIONS (8)
  - Abdominal pain [Recovered/Resolved]
  - Haematochezia [Recovered/Resolved]
  - Oral pain [Not Recovered/Not Resolved]
  - Gingival erythema [Not Recovered/Not Resolved]
  - Chronic recurrent multifocal osteomyelitis [Not Recovered/Not Resolved]
  - Diarrhoea [Recovered/Resolved]
  - Swelling face [Not Recovered/Not Resolved]
  - Localised infection [Not Recovered/Not Resolved]

NARRATIVE: CASE EVENT DATE: 2018
